FAERS Safety Report 25966954 (Version 2)
Quarter: 2025Q4

REPORT INFORMATION
  Report Type: Spontaneous
  Country: US (occurrence: None)
  Receive Date: 20251028
  Receipt Date: 20251203
  Transmission Date: 20260117
  Serious: No
  Sender: APOTEX
  Company Number: US-APOTEX-2025AP031155

PATIENT
  Age: 14 Year
  Sex: Female

DRUGS (1)
  1. VYVANSE [Suspect]
     Active Substance: LISDEXAMFETAMINE DIMESYLATE
     Indication: Obesity
     Dosage: 60 MILLIGRAM
     Route: 065

REACTIONS (2)
  - Off label use [Unknown]
  - Weight decreased [Unknown]
